FAERS Safety Report 6321811-1 (Version None)
Quarter: 2009Q3

REPORT INFORMATION
  Report Type: 
  Country: None (occurrence: None)
  Receive Date: 20090821
  Receipt Date: 20090821
  Transmission Date: 20100115
  Serious: Yes (Other)
  Sender: FDA-Public Use
  Company Number: None

PATIENT
  Age: 34 Year
  Sex: Male
  Weight: 152.8622 kg

DRUGS (2)
  1. TOPAMAX [Suspect]
     Indication: GENERALISED ANXIETY DISORDER
     Dosage: ONE PO BID
     Route: 048
     Dates: start: 20090416
  2. TOPAMAX [Suspect]
     Indication: GENERALISED ANXIETY DISORDER
     Dosage: ONE PO BID
     Route: 048
     Dates: start: 20090820

REACTIONS (3)
  - AGITATION [None]
  - BIPOLAR DISORDER [None]
  - PRODUCT SUBSTITUTION ISSUE [None]
